FAERS Safety Report 14394667 (Version 1)
Quarter: 2018Q1

REPORT INFORMATION
  Report Type: Spontaneous
  Country: FR (occurrence: FR)
  Receive Date: 20180116
  Receipt Date: 20180116
  Transmission Date: 20180509
  Serious: Yes (Death, Life-Threatening)
  Sender: FDA-Public Use
  Company Number: FR-PFIZER INC-2018012986

PATIENT
  Age: 71 Year
  Sex: Male
  Weight: 110 kg

DRUGS (7)
  1. ALDACTONE [Concomitant]
     Active Substance: SPIRONOLACTONE
     Dosage: UNK
  2. METFORMIN [Concomitant]
     Active Substance: METFORMIN HYDROCHLORIDE
     Dosage: UNK
  3. FRAGMINE [Suspect]
     Active Substance: DALTEPARIN SODIUM
     Indication: VENOUS THROMBOSIS
     Dosage: 30000 IU, 1X/DAY
     Route: 058
     Dates: start: 201707, end: 20171212
  4. CORDARONE [Concomitant]
     Active Substance: AMIODARONE HYDROCHLORIDE
     Dosage: UNK
  5. INEXIUM /01479302/ [Concomitant]
     Active Substance: ESOMEPRAZOLE MAGNESIUM
     Dosage: UNK
  6. PROPRANOLOL [Concomitant]
     Active Substance: PROPRANOLOL HYDROCHLORIDE
     Dosage: UNK
  7. KARDEGIC [Suspect]
     Active Substance: ASPIRIN DL-LYSINE
     Indication: ATRIAL FIBRILLATION
     Dosage: 75 MG, 1X/DAY
     Route: 048

REACTIONS (4)
  - Abdominal wall haematoma [Not Recovered/Not Resolved]
  - Shock haemorrhagic [Fatal]
  - Overdose [Unknown]
  - Multiple organ dysfunction syndrome [Fatal]

NARRATIVE: CASE EVENT DATE: 201707
